FAERS Safety Report 7466133-0 (Version None)
Quarter: 2011Q2

REPORT INFORMATION
  Report Type: 
  Country: None (occurrence: None)
  Receive Date: 20110505
  Receipt Date: 20110505
  Transmission Date: 20111010
  Serious: Yes (Life-Threatening, Hospitalization)
  Sender: FDA-Public Use
  Company Number: None

PATIENT
  Age: 39 Year
  Sex: Female
  Weight: 89.8122 kg

DRUGS (2)
  1. EXALGO [Suspect]
     Indication: PAIN
     Dosage: 12MG BID PO
     Route: 048
     Dates: start: 20110428, end: 20110504
  2. EXALGO [Suspect]
     Indication: FIBROMYALGIA
     Dosage: 12MG BID PO
     Route: 048
     Dates: start: 20110428, end: 20110504

REACTIONS (3)
  - AKATHISIA [None]
  - AGITATION [None]
  - AGGRESSION [None]
